FAERS Safety Report 6612180-8 (Version None)
Quarter: 2010Q1

REPORT INFORMATION
  Report Type: 
  Country: None (occurrence: None)
  Receive Date: 20100303
  Receipt Date: 20100225
  Transmission Date: 20100710
  Serious: Yes (Other)
  Sender: FDA-Public Use
  Company Number: US-ELI_LILLY_AND_COMPANY-US201003000058

PATIENT
  Age: 90 Year
  Sex: Female

DRUGS (2)
  1. HUMALOG MIX 75/25 [Suspect]
     Indication: DIABETES MELLITUS
     Dosage: 16 U, EACH MORNING
  2. HUMALOG MIX 75/25 [Suspect]
     Dosage: 4 U, EACH EVENING

REACTIONS (1)
  - BLINDNESS [None]
